FAERS Safety Report 9204968 (Version 1)
Quarter: 2013Q2

REPORT INFORMATION
  Report Type: Spontaneous
  Country: US (occurrence: US)
  Receive Date: 20130402
  Receipt Date: 20130402
  Transmission Date: 20140414
  Serious: No
  Sender: FDA-Public Use
  Company Number: US-ASTRAZENECA-2013SE18640

PATIENT
  Age: 61 Year
  Sex: Female
  Weight: 70.3 kg

DRUGS (5)
  1. NEXIUM [Suspect]
     Indication: GASTROOESOPHAGEAL REFLUX DISEASE
     Route: 048
     Dates: start: 20130221
  2. TOPROL XL [Suspect]
     Indication: HYPERTENSION
     Route: 048
     Dates: start: 2012
  3. HYZAAR [Concomitant]
     Indication: HYPERTENSION
  4. LEVOXYL [Concomitant]
     Indication: THYROID DISORDER
     Dosage: 112MCG DAILY
  5. WELLBUTRIN [Concomitant]
     Indication: FIBROMYALGIA

REACTIONS (7)
  - Sinusitis [Unknown]
  - Oropharyngeal pain [Unknown]
  - Speech disorder [Unknown]
  - Lymphadenopathy [Unknown]
  - Pharyngeal oedema [Unknown]
  - Blood pressure increased [Unknown]
  - Gastrooesophageal reflux disease [Unknown]
